FAERS Safety Report 7400670-X (Version None)
Quarter: 2011Q2

REPORT INFORMATION
  Report Type: 
  Country: None (occurrence: None)
  Receive Date: 20110407
  Receipt Date: 20110401
  Transmission Date: 20111010
  Serious: Yes (Hospitalization)
  Sender: FDA-Public Use
  Company Number: A0773276A

PATIENT
  Sex: Male
  Weight: 109.1 kg

DRUGS (3)
  1. TRICOR [Concomitant]
     Dates: start: 20060321
  2. AVANDIA [Suspect]
     Route: 048
     Dates: start: 20021101, end: 20071128
  3. METFORMIN HCL [Concomitant]
     Dates: start: 20050901

REACTIONS (9)
  - MACULAR OEDEMA [None]
  - CARDIAC DISORDER [None]
  - MYOCARDIAL INFARCTION [None]
  - DEPRESSION [None]
  - CARDIAC FAILURE CONGESTIVE [None]
  - ERECTILE DYSFUNCTION [None]
  - ELECTROCARDIOGRAM CHANGE [None]
  - FATIGUE [None]
  - ARRHYTHMIA [None]
